FAERS Safety Report 6424529-X (Version None)
Quarter: 2009Q4

REPORT INFORMATION
  Report Type: 
  Country: None (occurrence: None)
  Receive Date: 20091103
  Receipt Date: 20091026
  Transmission Date: 20100525
  Serious: Yes (Death)
  Sender: FDA-Public Use
  Company Number: NL-ROCHE-665104

PATIENT

DRUGS (5)
  1. CAPECITABINE [Suspect]
     Indication: GASTRIC CANCER
     Dosage: LAST DOSE PRIOR TO EVENT: 16 OCTOBER 2009. FROM DAY 1-14 EVERY 3 WEEKS (AS PER PROTOCOL).
     Route: 048
  2. EPIRUBICIN [Suspect]
     Indication: GASTRIC CANCER
     Dosage: AS PER PROTOCOL FREQUENCY EVERY 3 WEEKS IMMEDIATE PRIOR TO THE CISPLATIN. LAST DOSE: 16 OCT 2009.
     Route: 042
  3. CISPLATIN [Suspect]
     Indication: GASTRIC CANCER
     Dosage: AS PER PROTOCOL FREQUENCY EVERY 3 WEEKS WITH HYDRATION.   LAST DOSE PRIOR TO SAE: 16 OCT 2009.
     Route: 042
  4. NEXIUM [Concomitant]
     Dosage: FREQUENCY: 1X1.
  5. VITAMIN B COMPLEX CAP [Concomitant]
     Dosage: FREQUENCY 1X1.

REACTIONS (1)
  - TUMOUR HAEMORRHAGE [None]
